FAERS Safety Report 25330897 (Version 1)
Quarter: 2025Q2

REPORT INFORMATION
  Report Type: Spontaneous
  Country: US (occurrence: US)
  Receive Date: 20250519
  Receipt Date: 20250519
  Transmission Date: 20250717
  Serious: No
  Sender: MYLAN
  Company Number: US-MYLANLABS-2025M1040395

PATIENT
  Sex: Female

DRUGS (4)
  1. LIPITOR [Suspect]
     Active Substance: ATORVASTATIN CALCIUM
     Indication: Product used for unknown indication
     Dosage: 40 MILLIGRAM, QOD (TAKE 1 (ONE) TABLET BY MOUTH EVERY OTHER DAY FOR 30 DAYS. MON-WED-FRI)
  2. LIPITOR [Suspect]
     Active Substance: ATORVASTATIN CALCIUM
     Dosage: 40 MILLIGRAM, QOD (TAKE 1 (ONE) TABLET BY MOUTH EVERY OTHER DAY FOR 30 DAYS. MON-WED-FRI)
     Route: 048
  3. LIPITOR [Suspect]
     Active Substance: ATORVASTATIN CALCIUM
     Dosage: 40 MILLIGRAM, QOD (TAKE 1 (ONE) TABLET BY MOUTH EVERY OTHER DAY FOR 30 DAYS. MON-WED-FRI)
     Route: 048
  4. LIPITOR [Suspect]
     Active Substance: ATORVASTATIN CALCIUM
     Dosage: 40 MILLIGRAM, QOD (TAKE 1 (ONE) TABLET BY MOUTH EVERY OTHER DAY FOR 30 DAYS. MON-WED-FRI)

REACTIONS (1)
  - Off label use [Unknown]
